FAERS Safety Report 6049200-8 (Version None)
Quarter: 2009Q1

REPORT INFORMATION
  Report Type: 
  Country: None (occurrence: None)
  Receive Date: 20090123
  Receipt Date: 20090121
  Transmission Date: 20090719
  Serious: Yes (Hospitalization)
  Sender: FDA-Public Use
  Company Number: FR-WYE-G02977709

PATIENT
  Age: 58 Year
  Sex: Female

DRUGS (1)
  1. TORISEL [Suspect]
     Indication: RENAL CANCER METASTATIC
     Dosage: UNKNOWN
     Route: 042
     Dates: start: 20080101, end: 20080918

REACTIONS (2)
  - BRONCHOSPASM [None]
  - INFUSION RELATED REACTION [None]
